FAERS Safety Report 14367212 (Version 1)
Quarter: 2018Q1

REPORT INFORMATION
  Report Type: Spontaneous
  Country: US (occurrence: US)
  Receive Date: 20180109
  Receipt Date: 20180109
  Transmission Date: 20180509
  Serious: No
  Sender: FDA-Public Use
  Company Number: US-JNJFOC-20171214788

PATIENT
  Age: 10 Month
  Sex: Male
  Weight: 9.07 kg

DRUGS (2)
  1. CHILDRENS MOTRIN [Suspect]
     Active Substance: IBUPROFEN
     Indication: PYREXIA
     Route: 048
     Dates: start: 20171125, end: 20171125
  2. CHILDRENS MOTRIN [Suspect]
     Active Substance: IBUPROFEN
     Indication: TEETHING
     Route: 048
     Dates: start: 20171125, end: 20171125

REACTIONS (6)
  - Drug administered to patient of inappropriate age [None]
  - Reaction to excipient [Recovered/Resolved]
  - Crying [Recovered/Resolved]
  - Reaction to food additive [None]
  - Drug administration error [Unknown]
  - Product substitution issue [None]

NARRATIVE: CASE EVENT DATE: 20171125
